FAERS Safety Report 13166710 (Version 1)
Quarter: 2017Q1

REPORT INFORMATION
  Report Type: Spontaneous
  Country: US (occurrence: US)
  Receive Date: 20170127
  Receipt Date: 20170127
  Transmission Date: 20170428
  Serious: Yes (Hospitalization)
  Sender: FDA-Public Use
  Company Number: None

PATIENT
  Age: 60 Year
  Sex: Female

DRUGS (2)
  1. IBRANCE [Suspect]
     Active Substance: PALBOCICLIB
     Indication: LYMPHOMA
     Dosage: 125MG DAILY FOR 21 DAYS ON, THEN 7 ORAL
     Route: 048
     Dates: start: 20161018
  2. IBRANCE [Suspect]
     Active Substance: PALBOCICLIB
     Indication: BREAST CANCER
     Dosage: 125MG DAILY FOR 21 DAYS ON, THEN 7 ORAL
     Route: 048
     Dates: start: 20161018

REACTIONS (3)
  - Kidney infection [None]
  - Pneumonia [None]
  - Sepsis [None]

NARRATIVE: CASE EVENT DATE: 20170115
